FAERS Safety Report 12378996 (Version 1)
Quarter: 2016Q2

REPORT INFORMATION
  Report Type: Spontaneous
  Country: FR (occurrence: FR)
  Receive Date: 20160517
  Receipt Date: 20160517
  Transmission Date: 20160815
  Serious: Yes (Life-Threatening)
  Sender: FDA-Public Use
  Company Number: FR-SA-2016SA095484

PATIENT
  Age: 63 Year
  Sex: Female

DRUGS (8)
  1. DUROGESIC [Concomitant]
     Active Substance: FENTANYL
     Dosage: ROUTE: TRD
  2. TRANXENE T-TAB [Suspect]
     Active Substance: CLORAZEPATE DIPOTASSIUM
     Route: 048
  3. PERJETA [Suspect]
     Active Substance: PERTUZUMAB
     Dosage: STRENGTH- 420 MG, ?FORM- SOLUTION FOR DILUTION FOR INFUSION
     Route: 042
     Dates: start: 2013, end: 20150122
  4. FLUOXETINE HYDROCHLORIDE. [Concomitant]
     Active Substance: FLUOXETINE HYDROCHLORIDE
     Route: 048
  5. THERALENE [Concomitant]
     Active Substance: TRIMEPRAZINE
     Route: 048
  6. DOCETAXEL. [Suspect]
     Active Substance: DOCETAXEL
     Route: 042
     Dates: start: 2013, end: 20150122
  7. RISPERDAL [Concomitant]
     Active Substance: RISPERIDONE
     Route: 048
  8. HERCEPTIN [Suspect]
     Active Substance: TRASTUZUMAB
     Route: 042
     Dates: start: 2013, end: 20150122

REACTIONS (2)
  - Coma [Recovered/Resolved with Sequelae]
  - Toxic leukoencephalopathy [Unknown]

NARRATIVE: CASE EVENT DATE: 20150123
